FAERS Safety Report 16885423 (Version 1)
Quarter: 2019Q4

REPORT INFORMATION
  Report Type: Spontaneous
  Country: US (occurrence: US)
  Receive Date: 20190809
  Receipt Date: 20190809
  Transmission Date: 20200122
  Serious: Yes (Other)
  Sender: FDA-Public Use
  Company Number: None

PATIENT

DRUGS (1)
  1. PAROXETENE HCL 10MG PAXIL [Suspect]
     Active Substance: PAROXETINE HYDROCHLORIDE
     Indication: DEPRESSION
     Dosage: ?          QUANTITY:1 DF DOSAGE FORM;?
     Route: 048
     Dates: start: 20190629, end: 201907

REACTIONS (7)
  - Myalgia [None]
  - Hyperhidrosis [None]
  - Withdrawal syndrome [None]
  - Diarrhoea [None]
  - Tremor [None]
  - Asthenia [None]
  - Disturbance in attention [None]

NARRATIVE: CASE EVENT DATE: 201906
